FAERS Safety Report 20776423 (Version 1)
Quarter: 2022Q2

REPORT INFORMATION
  Report Type: Spontaneous
  Country: IN (occurrence: IN)
  Receive Date: 20220502
  Receipt Date: 20220502
  Transmission Date: 20220720
  Serious: Yes (Death, Other)
  Sender: FDA-Public Use
  Company Number: IN-PFIZER INC-202200071965

PATIENT
  Age: 64 Year
  Sex: Female

DRUGS (1)
  1. PALBOCICLIB [Suspect]
     Active Substance: PALBOCICLIB
     Dosage: 125 MG, 1X/DAY
     Dates: start: 20211010, end: 202203

REACTIONS (10)
  - Death [Fatal]
  - Cellulitis [Unknown]
  - Muscular weakness [Unknown]
  - White blood cell disorder [Unknown]
  - Haemoglobin abnormal [Unknown]
  - Platelet count abnormal [Unknown]
  - Blood pressure abnormal [Unknown]
  - Paraesthesia [Unknown]
  - Hypoaesthesia [Unknown]
  - Blister [Unknown]

NARRATIVE: CASE EVENT DATE: 20220301
